FAERS Safety Report 7690427-7 (Version None)
Quarter: 2011Q3

REPORT INFORMATION
  Report Type: 
  Country: None (occurrence: None)
  Receive Date: 20110812
  Receipt Date: 20110803
  Transmission Date: 20111222
  Serious: Yes (Death, Other)
  Sender: FDA-Public Use
  Company Number: 009119

PATIENT
  Age: 76 Year
  Sex: Male

DRUGS (7)
  1. ATORVASTATIN CALCIUM [Concomitant]
  2. PLETAL [Suspect]
     Indication: INTERMITTENT CLAUDICATION
     Dosage: 200 MG MILLIGRAM(S), DAILY DOSE, ORAL
     Route: 048
     Dates: start: 20090930, end: 20100329
  3. METFORMIN HCL [Concomitant]
  4. CARVEDILOL [Concomitant]
  5. AMARYL [Concomitant]
  6. INSULIN LANTUS (INSULIN GLARGINE) [Concomitant]
  7. UROLOSIN (TAMSULOSIN HYDROCHLORIDE) [Concomitant]

REACTIONS (3)
  - HYPERGLYCAEMIA [None]
  - PANCREATIC NEOPLASM [None]
  - ISCHAEMIC CEREBRAL INFARCTION [None]
